FAERS Safety Report 5442706-1 (Version None)
Quarter: 2007Q3

REPORT INFORMATION
  Report Type: 
  Country: None (occurrence: None)
  Receive Date: 20070731
  Receipt Date: 20070620
  Transmission Date: 20080115
  Serious: No
  Sender: FDA-Public Use
  Company Number: US200706003585

PATIENT
  Age: 59 Year
  Sex: Female

DRUGS (3)
  1. BYETTA [Suspect]
     Indication: TYPE 2 DIABETES MELLITUS
     Dosage: 5 UG, SUBCUTANEOUS
     Route: 058
     Dates: start: 20070613
  2. METFORMIN HCL [Concomitant]
  3. GLIPIZIDE [Concomitant]

REACTIONS (7)
  - ANOREXIA [None]
  - ASTHENIA [None]
  - BLOOD GLUCOSE DECREASED [None]
  - FATIGUE [None]
  - FEELING COLD [None]
  - FEELING JITTERY [None]
  - NAUSEA [None]
